FAERS Safety Report 10142927 (Version 1)
Quarter: 2014Q2

REPORT INFORMATION
  Report Type: Spontaneous
  Country: US (occurrence: None)
  Receive Date: 20140428
  Receipt Date: 20140428
  Transmission Date: 20141212
  Serious: Yes (Hospitalization)
  Sender: FDA-Public Use
  Company Number: USW201404-000075

PATIENT
  Age: 70 Year
  Sex: Female

DRUGS (5)
  1. APOKYN [Suspect]
     Indication: PARKINSON^S DISEASE
     Dosage: 0.2 ML, AS REQUIRED (SITE: ABDOMEN), SUBCUTANEOUS
     Dates: start: 2012
  2. COMTAN (ENTACAPONE) (ENTACAPONE) [Concomitant]
  3. SINEMET CR (CARBIDOPA, LEVODOPA) (CARBIDOPA, LEVODOPA) [Concomitant]
  4. CARBIDOPE/LEVODOPA (CARBIDOPA, LEVODOPA) (CARBIDOPA, LEVODOPA) [Concomitant]
  5. TIGAN (TRIMETHOBENZAMIDE) (TRIMETHOBENZAMIDE) [Concomitant]

REACTIONS (2)
  - Fall [None]
  - Hip fracture [None]
